FAERS Safety Report 7388688-7 (Version None)
Quarter: 2011Q1

REPORT INFORMATION
  Report Type: 
  Country: None (occurrence: None)
  Receive Date: 20110324
  Receipt Date: 20110318
  Transmission Date: 20110831
  Serious: Yes (Other)
  Sender: FDA-Public Use
  Company Number: 2011S1000222

PATIENT
  Age: 60 Year
  Sex: Female
  Weight: 67.4 kg

DRUGS (6)
  1. ALOSEN /00476901/ (ALOSEN /00476901/) [Suspect]
     Indication: CONSTIPATION
     Dosage: 1 GM 1X; PO
     Route: 048
     Dates: start: 20110117, end: 20110118
  2. ZETIA [Suspect]
     Indication: HYPERCHOLESTEROLAEMIA
     Dosage: 10 MG; 1X; PO, 10 MG; 1X; PO
     Route: 048
     Dates: start: 20110126, end: 20110126
  3. ZETIA [Suspect]
     Indication: HYPERCHOLESTEROLAEMIA
     Dosage: 10 MG; 1X; PO, 10 MG; 1X; PO
     Route: 048
     Dates: start: 20090526, end: 20110119
  4. LIVALO [Suspect]
     Indication: HYPERCHOLESTEROLAEMIA
     Dosage: 2 MG; 1X; PO, 2 MG; 1X; PO, 2 MG, 1X; PO
     Route: 048
     Dates: start: 20090227, end: 20110110
  5. LIVALO [Suspect]
     Indication: HYPERCHOLESTEROLAEMIA
     Dosage: 2 MG; 1X; PO, 2 MG; 1X; PO, 2 MG, 1X; PO
     Route: 048
     Dates: start: 20110126, end: 20110126
  6. LIVALO [Suspect]
     Indication: HYPERCHOLESTEROLAEMIA
     Dosage: 2 MG; 1X; PO, 2 MG; 1X; PO, 2 MG, 1X; PO
     Route: 048
     Dates: start: 20110101

REACTIONS (2)
  - CONSTIPATION [None]
  - THROMBOCYTOPENIC PURPURA [None]
